FAERS Safety Report 9792909 (Version 1)
Quarter: 2014Q1

REPORT INFORMATION
  Report Type: Spontaneous
  Country: US (occurrence: US)
  Receive Date: 20140102
  Receipt Date: 20140102
  Transmission Date: 20141002
  Serious: No
  Sender: FDA-Public Use
  Company Number: US-SA-2013SA128893

PATIENT
  Age: 62 Year
  Sex: Female

DRUGS (8)
  1. AUBAGIO [Suspect]
     Indication: MULTIPLE SCLEROSIS
     Route: 065
     Dates: start: 20130813
  2. PEPTO-BISMOL [Concomitant]
     Indication: ABDOMINAL DISCOMFORT
     Dosage: SODE: 262/15 OT
     Route: 048
     Dates: start: 20131108
  3. GABAPENTIN [Concomitant]
     Indication: NEUROPATHY PERIPHERAL
     Dosage: DOSE: 300-600 MG
     Route: 048
     Dates: start: 20131106
  4. SERTRALINE HYDROCHLORIDE [Concomitant]
     Indication: DEPRESSION
     Route: 048
     Dates: start: 20130820
  5. BACLOFEN [Concomitant]
     Indication: MUSCLE SPASTICITY
     Route: 048
     Dates: start: 20130807
  6. AMBIEN [Concomitant]
     Indication: INSOMNIA
     Route: 048
     Dates: start: 20130506
  7. VITAMIN D3 [Concomitant]
     Indication: NUTRITIONAL SUPPLEMENTATION
     Route: 048
     Dates: start: 20120514
  8. SUMATRIPTAN SUCCINATE [Concomitant]
     Indication: HEADACHE
     Route: 048
     Dates: start: 20120514

REACTIONS (1)
  - Alopecia [Unknown]
